FAERS Safety Report 8780354 (Version 1)
Quarter: 2012Q4

REPORT INFORMATION
  Report Type: Spontaneous
  Country: US (occurrence: None)
  Receive Date: 20120905
  Receipt Date: 20120905
  Transmission Date: 20130627
  Serious: Yes (Other)
  Sender: FDA-Public Use
  Company Number: None

PATIENT
  Age: 67 Year
  Sex: Female
  Weight: 61.24 kg

DRUGS (1)
  1. NIASPAN [Suspect]
     Indication: HIGH CHOLESTEROL
     Dates: start: 20120714, end: 20120718

REACTIONS (7)
  - Blister [None]
  - Urticaria [None]
  - Feeling hot [None]
  - Rash [None]
  - Flushing [None]
  - Pain [None]
  - Discomfort [None]
